FAERS Safety Report 5588567-1 (Version None)
Quarter: 2008Q1

REPORT INFORMATION
  Report Type: 
  Country: None (occurrence: None)
  Receive Date: 20080111
  Receipt Date: 20071004
  Transmission Date: 20080703
  Serious: No
  Sender: FDA-Public Use
  Company Number: US-BRISTOL-MYERS SQUIBB COMPANY-13929609

PATIENT
  Sex: Female

DRUGS (4)
  1. TRAZODONE HCL [Suspect]
  2. SEROQUEL [Concomitant]
  3. CYMBALTA [Concomitant]
  4. VISTARIL [Concomitant]

REACTIONS (1)
  - DRUG SCREEN POSITIVE [None]
